FAERS Safety Report 4699016-X (Version None)
Quarter: 2005Q2

REPORT INFORMATION
  Report Type: 
  Country: None (occurrence: None)
  Receive Date: 20050623
  Receipt Date: 20050623
  Transmission Date: 20051028
  Serious: Yes (Hospitalization, Other)
  Sender: FDA-Public Use
  Company Number: None

PATIENT
  Sex: Male
  Weight: 71.9 kg

DRUGS (3)
  1. FLUOROURACIL [Suspect]
     Indication: ANAL CANCER
     Dosage: 1000 MG/M2/DAY GIVEN AS CONTINUOUS INFUSION IN 5% DEXTROSE OR 0.5 NS DAILY FOR 96 HRS CONTINUOUSLY
     Dates: start: 20050517
  2. MITOMYCIN C [Suspect]
     Dosage: 10 MG/M1 IV BOLUS ON DAYS 1 AND 29
     Route: 040
  3. RADIATION [Suspect]

REACTIONS (4)
  - CLOSTRIDIUM COLITIS [None]
  - ILEUS [None]
  - NAUSEA [None]
  - VOMITING [None]
